FAERS Safety Report 7038468-7 (Version None)
Quarter: 2010Q4

REPORT INFORMATION
  Report Type: 
  Country: None (occurrence: None)
  Receive Date: 20101011
  Receipt Date: 20100602
  Transmission Date: 20110411
  Serious: No
  Sender: FDA-Public Use
  Company Number: US-PFIZER INC-2010070026

PATIENT
  Sex: Female
  Weight: 74.83 kg

DRUGS (6)
  1. NEURONTIN [Suspect]
     Indication: NECK INJURY
     Dosage: UNK
     Dates: start: 19990101
  2. NEURONTIN [Suspect]
     Indication: BACK INJURY
  3. NEURONTIN [Suspect]
     Indication: NEURALGIA
  4. NAPROXEN [Concomitant]
     Dosage: UNK
  5. DIAZEPAM [Concomitant]
     Dosage: UNK
  6. OXYCONTIN [Concomitant]
     Dosage: UNK

REACTIONS (2)
  - DENTAL CARIES [None]
  - DRY MOUTH [None]
